FAERS Safety Report 8091400-X (Version None)
Quarter: 2012Q1

REPORT INFORMATION
  Report Type: 
  Country: None (occurrence: None)
  Receive Date: 20120129
  Receipt Date: 20120124
  Transmission Date: 20120608
  Serious: Yes (Other)
  Sender: FDA-Public Use
  Company Number: AR-AMGEN-ARGSP2012004194

PATIENT
  Age: 65 Year
  Sex: Female

DRUGS (3)
  1. ENBREL [Suspect]
     Indication: RHEUMATOID ARTHRITIS
     Dosage: 50 MG, WEEKLY
     Dates: start: 20110215, end: 20111101
  2. METHOTREXATE [Concomitant]
     Dosage: 15 MG, WEEKLY
  3. FOLIC ACID [Concomitant]
     Dosage: 10 MG, WEEKLY

REACTIONS (2)
  - FEMUR FRACTURE [None]
  - FALL [None]
